FAERS Safety Report 25285776 (Version 2)
Quarter: 2025Q2

REPORT INFORMATION
  Report Type: Spontaneous
  Country: JP (occurrence: JP)
  Receive Date: 20250509
  Receipt Date: 20250522
  Transmission Date: 20250716
  Serious: Yes (Hospitalization)
  Sender: ROCHE
  Company Number: JP-ROCHE-10000277668

PATIENT
  Age: 45 Year
  Sex: Female
  Weight: 38.8 kg

DRUGS (5)
  1. CELLCEPT [Suspect]
     Active Substance: MYCOPHENOLATE MOFETIL
     Indication: Polymyositis
     Route: 048
     Dates: start: 2019
  2. CELLCEPT [Suspect]
     Active Substance: MYCOPHENOLATE MOFETIL
     Indication: Interstitial lung disease
  3. ABATACEPT [Concomitant]
     Active Substance: ABATACEPT
  4. TACROLIMUS [Concomitant]
     Active Substance: TACROLIMUS
  5. PREDNISOLONE [Concomitant]
     Active Substance: PREDNISOLONE

REACTIONS (3)
  - Pleuroparenchymal fibroelastosis [Unknown]
  - Pneumothorax [Unknown]
  - Off label use [Unknown]
